FAERS Safety Report 7094507-9 (Version None)
Quarter: 2010Q4

REPORT INFORMATION
  Report Type: 
  Country: None (occurrence: None)
  Receive Date: 20101110
  Receipt Date: 20101104
  Transmission Date: 20110411
  Serious: Yes (Life-Threatening, Hospitalization, Disabling, Other)
  Sender: FDA-Public Use
  Company Number: PHHY2010CA75045

PATIENT
  Sex: Male

DRUGS (17)
  1. CLOZARIL [Suspect]
     Indication: SCHIZOPHRENIA, PARANOID TYPE
     Dosage: 200 MG, QD
     Route: 048
     Dates: start: 20101006, end: 20101103
  2. OLANZAPINE [Concomitant]
     Dosage: 10 MG
     Route: 048
  3. CLARITHROMYCIN [Concomitant]
     Dosage: 500 MG, BID
     Route: 048
  4. FINASTERIDE [Concomitant]
     Dosage: 5 MG, QD
     Route: 048
  5. SALBUTAMOL [Concomitant]
     Dosage: 200 UG, UNK
  6. DOMPERIDONE [Concomitant]
     Dosage: 10 MG, BID
     Route: 048
  7. ENOXAPARIN SODIUM [Concomitant]
     Dosage: 200 MG, UNK
     Route: 058
  8. CEFACLOR [Concomitant]
     Dosage: 500 MG, TID
     Route: 048
  9. NICOTINE [Concomitant]
     Dosage: 4 MG, UNK
     Route: 048
  10. PERINDOPRIL ERBUMINE [Concomitant]
     Dosage: 4 MG, QHS
     Route: 048
  11. ROSUVASTATIN CALCIUM [Concomitant]
     Dosage: 10 MG, QHS
     Route: 048
  12. CICLESONIDE [Concomitant]
     Dosage: 200 UG, QHS
     Route: 048
  13. TAMSULOSIN [Concomitant]
     Dosage: 0.4 MG, QD
     Route: 048
  14. FERROUS GLUCONATE [Concomitant]
     Dosage: 300 MG, UNK
     Route: 048
  15. POTASSIUM CHLORIDE [Concomitant]
     Dosage: 20 MEQ, QD
     Route: 048
  16. NIFEDIPINE [Concomitant]
     Dosage: 90 MG, QD
     Route: 048
  17. TIOTROPIUM BROMIDE [Concomitant]
     Dosage: 18 UG, QD

REACTIONS (5)
  - ASTHMA [None]
  - CHRONIC OBSTRUCTIVE PULMONARY DISEASE [None]
  - FATIGUE [None]
  - INTESTINAL OBSTRUCTION [None]
  - WEIGHT DECREASED [None]
